FAERS Safety Report 8397691-X (Version None)
Quarter: 2012Q2

REPORT INFORMATION
  Report Type: 
  Country: None (occurrence: None)
  Receive Date: 20120531
  Receipt Date: 20120529
  Transmission Date: 20120825
  Serious: Yes (Other)
  Sender: FDA-Public Use
  Company Number: US-PFIZER INC-2012092037

PATIENT
  Sex: Male
  Weight: 72.562 kg

DRUGS (3)
  1. DILANTIN [Suspect]
     Indication: CONVULSION
     Dosage: 300 MG, 1X/DAY
     Route: 048
     Dates: start: 19820101, end: 20120405
  2. DILANTIN [Suspect]
     Dosage: 300 MG, 2X/DAY
     Route: 048
     Dates: start: 20120405
  3. OXYCODONE [Concomitant]
     Dosage: UNK

REACTIONS (10)
  - CONVULSION [None]
  - DRUG LEVEL DECREASED [None]
  - LIPASE ABNORMAL [None]
  - SPEECH DISORDER [None]
  - DYSPHEMIA [None]
  - MUSCLE DISORDER [None]
  - MOVEMENT DISORDER [None]
  - IRRITABILITY [None]
  - TREMOR [None]
  - STARING [None]
